FAERS Safety Report 15758921 (Version 1)
Quarter: 2018Q4

REPORT INFORMATION
  Report Type: Spontaneous
  Country: HU (occurrence: HU)
  Receive Date: 20181225
  Receipt Date: 20181225
  Transmission Date: 20190205
  Serious: Yes (Other)
  Sender: FDA-Public Use
  Company Number: HU-BAXTER-2018BAX030584

PATIENT
  Age: 50 Year
  Sex: Female

DRUGS (1)
  1. ENDOXAN 1G POR OLDATOS INJEKCI?HOZ [Suspect]
     Active Substance: CYCLOPHOSPHAMIDE
     Indication: PRODUCT USED FOR UNKNOWN INDICATION
     Dosage: UNK
     Route: 042
     Dates: start: 2017

REACTIONS (11)
  - Areflexia [Unknown]
  - Allodynia [Unknown]
  - Palmomental reflex [Unknown]
  - Paraesthesia [Unknown]
  - Gait disturbance [Unknown]
  - Headache [Unknown]
  - Visual impairment [Unknown]
  - Hypoaesthesia [Unknown]
  - Paraparesis [Unknown]
  - Nerve injury [Recovered/Resolved]
  - Neuralgia [Unknown]

NARRATIVE: CASE EVENT DATE: 2017
